FAERS Safety Report 9795557 (Version 1)
Quarter: 2014Q1

REPORT INFORMATION
  Report Type: Spontaneous
  Country: US (occurrence: US)
  Receive Date: 20140103
  Receipt Date: 20140103
  Transmission Date: 20141002
  Serious: Yes (Hospitalization)
  Sender: FDA-Public Use
  Company Number: US-BAYER-2014-000758

PATIENT
  Age: 55 Year
  Sex: Female

DRUGS (4)
  1. YASMIN [Suspect]
  2. ACTONEL [Concomitant]
     Dosage: 35 MG, UNK
  3. ACETAMINOPHEN W/CODEINE [Concomitant]
     Dosage: 300-30 MG
  4. SKELAXIN [Concomitant]
     Dosage: 400 MG, UNK

REACTIONS (2)
  - Deep vein thrombosis [Recovered/Resolved]
  - Pulmonary embolism [Recovered/Resolved]
